FAERS Safety Report 8335914-3 (Version None)
Quarter: 2012Q2

REPORT INFORMATION
  Report Type: 
  Country: None (occurrence: None)
  Receive Date: 20120504
  Receipt Date: 20120501
  Transmission Date: 20120825
  Serious: Yes (Other)
  Sender: FDA-Public Use
  Company Number: US-PFIZER INC-2012076147

PATIENT
  Sex: Male
  Weight: 81.633 kg

DRUGS (1)
  1. ZOLOFT [Suspect]
     Indication: DEPRESSION
     Dosage: 25 MG, 1X/DAY
     Route: 048
     Dates: start: 20111201, end: 20120320

REACTIONS (6)
  - ANXIETY [None]
  - AGITATION [None]
  - DRUG INEFFECTIVE [None]
  - IRRITABILITY [None]
  - DEPRESSION [None]
  - NERVOUSNESS [None]
